FAERS Safety Report 23132744 (Version 2)
Quarter: 2023Q4

REPORT INFORMATION
  Report Type: Report from Study
  Country: PT (occurrence: PT)
  Receive Date: 20231101
  Receipt Date: 20231129
  Transmission Date: 20240110
  Serious: Yes (Hospitalization)
  Sender: FDA-Public Use
  Company Number: PT-ABBVIE-5351974

PATIENT
  Age: 77 Year
  Sex: Male

DRUGS (19)
  1. CARBIDOPA\LEVODOPA [Suspect]
     Active Substance: CARBIDOPA\LEVODOPA
     Indication: Parkinson^s disease
     Dosage: 20 MG + 5 MG (PEG),?FREQUENCY TEXT: MORN:18.5CC;MAINT:4.7CC/H;EXTR:3CC
     Route: 050
     Dates: start: 20231122
  2. CARBIDOPA\LEVODOPA [Suspect]
     Active Substance: CARBIDOPA\LEVODOPA
     Dosage: 20 MG AND 5 MG, MORN:18.5CC;MAINT:4.5CC/H;EXTR:3CC
     Route: 050
     Dates: start: 202307, end: 20230731
  3. CARBIDOPA\LEVODOPA [Suspect]
     Active Substance: CARBIDOPA\LEVODOPA
     Dosage: 20 MG + 5 MG, MORN:10.5CC;MAINT:2.8CC/H;EXTR:1CC?END DATE- 2023.
     Route: 050
     Dates: start: 20230626
  4. CARBIDOPA\LEVODOPA [Suspect]
     Active Substance: CARBIDOPA\LEVODOPA
     Dosage: 20 MG + 5 MG (PEG),?FREQUENCY TEXT: MORN:18.5CC;MAINT:4.5CC/H;EXTR:3CC
     Route: 050
     Dates: start: 20231027, end: 20231122
  5. CARBIDOPA\LEVODOPA [Suspect]
     Active Substance: CARBIDOPA\LEVODOPA
     Dosage: 20 MG AND 5 MG, MORN:18.5CC;MAINT:4.8CC/H;EXTR:3CC
     Route: 050
     Dates: start: 20230731, end: 20230807
  6. CARBIDOPA\LEVODOPA [Suspect]
     Active Substance: CARBIDOPA\LEVODOPA
     Dosage: 20 MG AND 5 MG ;MORN:18.5CC;MAINT:4.8CC/H;EXTR:3CC
     Route: 050
     Dates: start: 20230807, end: 20230818
  7. CARBIDOPA\LEVODOPA [Suspect]
     Active Substance: CARBIDOPA\LEVODOPA
     Dosage: 20 MG + 5 MG,?FREQUENCY TEXT: MORN:18.5CC;MAINT:4.5CC/H;EXTR:3CC
     Route: 050
     Dates: start: 20230818, end: 20231027
  8. CIPRALEX [Concomitant]
     Active Substance: ESCITALOPRAM OXALATE
     Indication: Product used for unknown indication
     Dosage: CIPRALEX 10 MG?START DATE- AT BREAKFAST, BEFORE DUODOPA
  9. METFORMIN [Concomitant]
     Active Substance: METFORMIN HYDROCHLORIDE
     Indication: Product used for unknown indication
     Dosage: METFORMIN 500 MG ?START DATE TEXT: BEFORE DUODOPA
  10. MIRABEGRON [Concomitant]
     Active Substance: MIRABEGRON
     Indication: Product used for unknown indication
     Dosage: BETMIGA 50 MG ?START DATE- AT BEDTIME, BEFORE DUODOPA
  11. ESOMEPRAZOLE [Concomitant]
     Active Substance: ESOMEPRAZOLE
     Indication: Product used for unknown indication
     Dosage: FORM STRENGTH: 20 MG?START DATE- BEFORE DUODOPA
  12. IRBESARTAN [Concomitant]
     Active Substance: IRBESARTAN
     Indication: Product used for unknown indication
     Dosage: IRBESARTAN300?START DATE- BEFORE DUODOPA
  13. RIVASTIGMINE [Concomitant]
     Active Substance: RIVASTIGMINE
     Indication: Product used for unknown indication
     Dosage: RIVASTIGMINE 4.6?START DATE- BEFORE DUODOPA
  14. ALFUZOSIN [Concomitant]
     Active Substance: ALFUZOSIN
     Indication: Product used for unknown indication
     Dosage: ALFUZOSIN 10?START DATE- BEFORE DUODOPA
  15. AMLODIPINE [Concomitant]
     Active Substance: AMLODIPINE BESYLATE
     Indication: Product used for unknown indication
     Dosage: AMLODIPINE 5? START DATE- BEFORE DUODOPA
  16. MELATONIN [Concomitant]
     Active Substance: MELATONIN
     Indication: Product used for unknown indication
     Dosage: START DATE- BEFORE DUODOPA,?FREQUENCY TEXT: AT BEDTIME
  17. RIVOTRIL [Concomitant]
     Active Substance: CLONAZEPAM
     Indication: Product used for unknown indication
     Dosage: RIVOTRIL 0,5, 2 TABLET, AT BEDTIME, START DATE BEFORE DUODOPA
     Route: 048
  18. SINEMET CR [Concomitant]
     Active Substance: CARBIDOPA\LEVODOPA
     Indication: Product used for unknown indication
     Dosage: FREQUENCY TEXT: AT BEDTIME, START DATE- BEFORE DUODOPA
  19. TROMALYT [Concomitant]
     Active Substance: ASPIRIN
     Indication: Product used for unknown indication
     Dosage: START DATE:BEFORE DUODOPA

REACTIONS (10)
  - Entropion [Recovered/Resolved]
  - Eye inflammation [Recovered/Resolved]
  - Dyskinesia [Recovering/Resolving]
  - Eye discharge [Recovered/Resolved]
  - Gait disturbance [Recovered/Resolved]
  - Decreased appetite [Recovered/Resolved]
  - Food aversion [Recovered/Resolved]
  - Taste disorder [Recovered/Resolved]
  - Psychomotor hyperactivity [Recovered/Resolved]
  - Lagophthalmos [Not Recovered/Not Resolved]

NARRATIVE: CASE EVENT DATE: 20230701
